FAERS Safety Report 7265670-1 (Version None)
Quarter: 2011Q1

REPORT INFORMATION
  Report Type: 
  Country: None (occurrence: None)
  Receive Date: 20110131
  Receipt Date: 20110125
  Transmission Date: 20110831
  Serious: Yes (Life-Threatening, Hospitalization, Other)
  Sender: FDA-Public Use
  Company Number: US-MERCK-1012USA02982

PATIENT
  Age: 84 Year
  Sex: Male
  Weight: 76 kg

DRUGS (3)
  1. IVEMEND [Suspect]
     Route: 041
     Dates: start: 20101101
  2. IVEMEND [Suspect]
     Indication: PROPHYLACTIC CHEMOTHERAPY
     Route: 041
     Dates: start: 20101105
  3. ALOXI [Suspect]
     Indication: PROPHYLACTIC CHEMOTHERAPY
     Route: 042
     Dates: start: 20101112

REACTIONS (2)
  - CARDIAC ARREST [None]
  - CARDIO-RESPIRATORY ARREST [None]
